FAERS Safety Report 18038834 (Version 3)
Quarter: 2020Q4

REPORT INFORMATION
  Report Type: Spontaneous
  Country: RO (occurrence: RO)
  Receive Date: 20200718
  Receipt Date: 20201217
  Transmission Date: 20210113
  Serious: Yes (Hospitalization, Other)
  Sender: FDA-Public Use
  Company Number: RO-AUROBINDO-AUR-APL-2020-034554

PATIENT
  Age: 76 Year
  Sex: Male

DRUGS (4)
  1. IBUPROFEN 600 MG [Suspect]
     Active Substance: IBUPROFEN
     Indication: UPPER RESPIRATORY TRACT INFECTION
     Dosage: 1200 MILLIGRAM
     Route: 065
  2. IBUPROFEN 600 MG [Suspect]
     Active Substance: IBUPROFEN
     Dosage: 2 DOSAGE FORM
     Route: 048
  3. IBUPROFEN 600 MG [Suspect]
     Active Substance: IBUPROFEN
     Indication: INFLUENZA LIKE ILLNESS
     Dosage: 600 MILLIGRAM, ONCE A DAY
     Route: 048
     Dates: start: 201602
  4. ZOLADEX [Concomitant]
     Active Substance: GOSERELIN ACETATE
     Indication: PROSTATE CANCER
     Dosage: UNK
     Route: 065
     Dates: start: 2011

REACTIONS (11)
  - Mucosal erosion [Recovered/Resolved]
  - Toxicity to various agents [Recovered/Resolved]
  - Rectal ulcer [Recovered/Resolved]
  - Rectal ulcer haemorrhage [Recovered/Resolved]
  - Condition aggravated [Recovered/Resolved]
  - Self-medication [Recovered/Resolved]
  - Anorectal discomfort [Recovered/Resolved]
  - Intentional product misuse [Recovered/Resolved]
  - Rectal haemorrhage [Recovered/Resolved]
  - Lower gastrointestinal haemorrhage [Recovered/Resolved]
  - Anaemia [Recovered/Resolved]

NARRATIVE: CASE EVENT DATE: 201602
